FAERS Safety Report 11549027 (Version 1)
Quarter: 2015Q3

REPORT INFORMATION
  Report Type: Spontaneous
  Country: US (occurrence: US)
  Receive Date: 20150924
  Receipt Date: 20150924
  Transmission Date: 20151125
  Serious: No
  Sender: FDA-Public Use
  Company Number: US-INCYTE CORPORATION-2015IN001871

PATIENT
  Age: 66 Year
  Sex: Female
  Weight: 99.77 kg

DRUGS (14)
  1. JAKAFI [Suspect]
     Active Substance: RUXOLITINIB
     Indication: POLYCYTHAEMIA VERA
     Dosage: 10 MG, BID
     Route: 048
     Dates: start: 20150119
  2. COENZYME Q10 [Concomitant]
     Active Substance: UBIDECARENONE
  3. FUROSEMIDE. [Concomitant]
     Active Substance: FUROSEMIDE
  4. ZYRTEC [Concomitant]
     Active Substance: CETIRIZINE HYDROCHLORIDE
  5. ASPIRIN. [Concomitant]
     Active Substance: ASPIRIN
  6. JAKAFI [Suspect]
     Active Substance: RUXOLITINIB
     Dosage: 5 MG, BID
     Route: 048
     Dates: start: 20150428
  7. PAXIL [Concomitant]
     Active Substance: PAROXETINE HYDROCHLORIDE
  8. SULFASALAZINE. [Concomitant]
     Active Substance: SULFASALAZINE
  9. ALLOPURINOL. [Concomitant]
     Active Substance: ALLOPURINOL
  10. LYRICA [Concomitant]
     Active Substance: PREGABALIN
  11. CALCIUM [Concomitant]
     Active Substance: CALCIUM
  12. LYSINE [Concomitant]
     Active Substance: LYSINE
  13. MUCINEX [Concomitant]
     Active Substance: GUAIFENESIN
  14. LEVOTHYROXINE. [Concomitant]
     Active Substance: LEVOTHYROXINE

REACTIONS (5)
  - Abdominal distension [Not Recovered/Not Resolved]
  - Arthralgia [Not Recovered/Not Resolved]
  - Oedema peripheral [Recovering/Resolving]
  - Flatulence [Recovering/Resolving]
  - Fluid retention [Unknown]

NARRATIVE: CASE EVENT DATE: 20150428
